FAERS Safety Report 5014551-2 (Version None)
Quarter: 2006Q2

REPORT INFORMATION
  Report Type: 
  Country: None (occurrence: None)
  Receive Date: 20060525
  Receipt Date: 20060512
  Transmission Date: 20061013
  Serious: Yes (Hospitalization, Other)
  Sender: FDA-Public Use
  Company Number: 2005105637

PATIENT
  Sex: Male

DRUGS (5)
  1. BEXTRA [Suspect]
     Indication: BACK PAIN
     Dosage: (20 MG)
     Dates: start: 20020101
  2. ADVIL [Concomitant]
  3. ALEVE [Concomitant]
  4. ASPIRIN [Concomitant]
  5. ACETAMINOPHEN [Concomitant]

REACTIONS (7)
  - AMNESIA [None]
  - ARRHYTHMIA [None]
  - ATRIAL FIBRILLATION [None]
  - CEREBELLAR HAEMORRHAGE [None]
  - CEREBROVASCULAR ACCIDENT [None]
  - DRUG INEFFECTIVE [None]
  - THROMBOSIS [None]
